FAERS Safety Report 8553768-7 (Version None)
Quarter: 2012Q3

REPORT INFORMATION
  Report Type: 
  Country: None (occurrence: None)
  Receive Date: 20120731
  Receipt Date: 20120724
  Transmission Date: 20120928
  Serious: Yes (Other)
  Sender: FDA-Public Use
  Company Number: GB-GLAXOSMITHKLINE-B0816743A

PATIENT
  Sex: Male

DRUGS (4)
  1. ROPINIROLE [Suspect]
     Indication: RESTLESS LEGS SYNDROME
     Route: 048
     Dates: start: 20100101, end: 20120706
  2. FLUOXETINE HCL [Concomitant]
     Indication: DEPRESSION
     Route: 048
     Dates: end: 20120201
  3. FEXOFENADINE [Concomitant]
     Indication: SEASONAL ALLERGY
     Route: 048
  4. MONTELUKAST [Concomitant]
     Indication: SEASONAL ALLERGY
     Route: 048

REACTIONS (3)
  - HYPERSEXUALITY [None]
  - COMPULSIONS [None]
  - SPEECH DISORDER [None]
